FAERS Safety Report 5583099-9 (Version None)
Quarter: 2008Q1

REPORT INFORMATION
  Report Type: 
  Country: None (occurrence: None)
  Receive Date: 20080107
  Receipt Date: 20071219
  Transmission Date: 20080703
  Serious: Yes (Hospitalization)
  Sender: FDA-Public Use
  Company Number: GB-ROCHE-539638

PATIENT

DRUGS (1)
  1. VESANOID [Suspect]
     Indication: ACUTE PROMYELOCYTIC LEUKAEMIA
     Route: 065

REACTIONS (2)
  - SMALL INTESTINAL OBSTRUCTION [None]
  - VOMITING [None]
